FAERS Safety Report 14081169 (Version 6)
Quarter: 2018Q2

REPORT INFORMATION
  Report Type: Spontaneous
  Country: CA (occurrence: CA)
  Receive Date: 20171012
  Receipt Date: 20180501
  Transmission Date: 20180711
  Serious: Yes (Death, Other)
  Sender: FDA-Public Use
  Company Number: CA-BEH-2017084310

PATIENT
  Age: 58 Year
  Sex: Female

DRUGS (4)
  1. LASIX [Concomitant]
     Active Substance: FUROSEMIDE
     Indication: OEDEMA
     Route: 065
  2. ALBUREX [Suspect]
     Active Substance: ALBUMIN HUMAN
     Indication: URINE OUTPUT DECREASED
     Dosage: 50 ML, SINGLE
     Route: 065
     Dates: start: 20170906, end: 20170906
  3. ALBUREX [Suspect]
     Active Substance: ALBUMIN HUMAN
     Indication: OEDEMA
     Dosage: 100 ML
     Route: 065
     Dates: start: 20170905, end: 20170905
  4. LASIX [Concomitant]
     Active Substance: FUROSEMIDE
     Indication: URINE OUTPUT DECREASED

REACTIONS (7)
  - Sputum abnormal [Recovered/Resolved]
  - Heart rate increased [Recovered/Resolved]
  - Pulmonary oedema [Recovered/Resolved]
  - Tachycardia [Recovered/Resolved]
  - Transfusion-related circulatory overload [Recovered/Resolved]
  - Dyspnoea [Recovered/Resolved]
  - Multiple organ dysfunction syndrome [Fatal]

NARRATIVE: CASE EVENT DATE: 20170906
